FAERS Safety Report 7979504-0 (Version None)
Quarter: 2011Q4

REPORT INFORMATION
  Report Type: 
  Country: None (occurrence: None)
  Receive Date: 20111214
  Receipt Date: 20111205
  Transmission Date: 20120403
  Serious: Yes (Hospitalization, Other)
  Sender: FDA-Public Use
  Company Number: PHFR2011GB05206

PATIENT
  Age: 77 Year
  Sex: Female

DRUGS (3)
  1. ZOLEDRONOC ACID [Suspect]
     Indication: OSTEOPOROSIS
     Dosage: 5 MG, UNK
     Route: 042
     Dates: start: 20100201
  2. MENAQUINONE [Concomitant]
  3. PROBIOTICA [Concomitant]

REACTIONS (21)
  - BLINDNESS [None]
  - MUSCLE SPASMS [None]
  - APHONIA [None]
  - JOINT DISLOCATION [None]
  - DYSPHAGIA [None]
  - EMOTIONAL DISTRESS [None]
  - DYSPHONIA [None]
  - AMNESIA [None]
  - MUSCLE DISORDER [None]
  - INSOMNIA [None]
  - ARTHRALGIA [None]
  - HYPERTONIC BLADDER [None]
  - PYREXIA [None]
  - MUSCLE CONTRACTURE [None]
  - ANKLE FRACTURE [None]
  - NEURALGIA [None]
  - GAIT DISTURBANCE [None]
  - DYSPNOEA [None]
  - FATIGUE [None]
  - JOINT SWELLING [None]
  - DEPRESSION [None]
